FAERS Safety Report 6537152-3 (Version None)
Quarter: 2010Q1

REPORT INFORMATION
  Report Type: 
  Country: None (occurrence: None)
  Receive Date: 20100114
  Receipt Date: 20091231
  Transmission Date: 20100710
  Serious: Yes (Other)
  Sender: FDA-Public Use
  Company Number: US-JNJFOC-20100100696

PATIENT
  Sex: Male
  Weight: 1.42 kg

DRUGS (18)
  1. REMICADE [Suspect]
     Indication: DRUG EXPOSURE DURING PREGNANCY
  2. TYLENOL W/ CODEINE NO. 3 [Suspect]
     Indication: DRUG EXPOSURE DURING PREGNANCY
  3. DIGOXIN [Concomitant]
     Indication: TACHYCARDIA FOETAL
  4. WELLBUTRIN XL [Concomitant]
     Indication: DRUG EXPOSURE DURING PREGNANCY
  5. LEXAPRO [Concomitant]
     Indication: DRUG EXPOSURE DURING PREGNANCY
  6. VITAMIN TAB [Concomitant]
     Indication: DRUG EXPOSURE DURING PREGNANCY
  7. PROTONIX [Concomitant]
     Indication: DRUG EXPOSURE DURING PREGNANCY
  8. TRAZODONE HCL [Concomitant]
     Indication: DRUG EXPOSURE DURING PREGNANCY
  9. ZOFRAN [Concomitant]
     Indication: DRUG EXPOSURE DURING PREGNANCY
  10. AMBIEN [Concomitant]
     Indication: DRUG EXPOSURE DURING PREGNANCY
  11. OXYGEN [Concomitant]
     Indication: DRUG EXPOSURE DURING PREGNANCY
  12. IMITREX [Concomitant]
     Indication: DRUG EXPOSURE DURING PREGNANCY
  13. ZOCOR [Concomitant]
     Indication: DRUG EXPOSURE DURING PREGNANCY
  14. XANAX XR [Concomitant]
     Indication: DRUG EXPOSURE DURING PREGNANCY
  15. METHOTREXATE [Concomitant]
     Indication: DRUG EXPOSURE DURING PREGNANCY
  16. OXYCONTIN [Concomitant]
     Indication: DRUG EXPOSURE DURING PREGNANCY
  17. BETAMETHASONE [Concomitant]
     Indication: MATERNAL THERAPY TO ENHANCE FOETAL LUNG MATURITY
  18. NIRAVAM [Concomitant]
     Indication: DRUG EXPOSURE DURING PREGNANCY

REACTIONS (2)
  - PREMATURE BABY [None]
  - TACHYCARDIA FOETAL [None]
